FAERS Safety Report 4375922-0 (Version None)
Quarter: 2004Q2

REPORT INFORMATION
  Report Type: 
  Country: None (occurrence: None)
  Receive Date: 20040609
  Receipt Date: 20040609
  Transmission Date: 20050107
  Serious: Yes (Hospitalization)
  Sender: FDA-Public Use
  Company Number: None

PATIENT
  Sex: Female

DRUGS (3)
  1. NPH INSULIN [Suspect]
     Dosage: 40 UNITS SQ
  2. ASPIRIN [Concomitant]
  3. FUROSEMIDE [Concomitant]

REACTIONS (7)
  - BLOOD GLUCOSE DECREASED [None]
  - BLOOD PRESSURE INCREASED [None]
  - DEMENTIA [None]
  - FALL [None]
  - MEDICATION ERROR [None]
  - MENTAL STATUS CHANGES [None]
  - SYNCOPE [None]
